FAERS Safety Report 20037343 (Version 1)
Quarter: 2021Q4

REPORT INFORMATION
  Report Type: Spontaneous
  Country: US (occurrence: None)
  Receive Date: 20211105
  Receipt Date: 20211105
  Transmission Date: 20220303
  Serious: Yes (Hospitalization)
  Sender: FDA-Public Use
  Company Number: US-ROCHE-2950769

PATIENT
  Sex: Female

DRUGS (4)
  1. ESBRIET [Suspect]
     Active Substance: PIRFENIDONE
     Indication: Idiopathic pulmonary fibrosis
     Dosage: ONGOING-YES
     Route: 048
     Dates: start: 201902
  2. AMBRISENTAN [Concomitant]
     Active Substance: AMBRISENTAN
  3. SILDENAFIL CITRATE [Concomitant]
     Active Substance: SILDENAFIL CITRATE
  4. UPTRAVI [Concomitant]
     Active Substance: SELEXIPAG
     Dosage: PAP 1600 MCG

REACTIONS (2)
  - Atrial fibrillation [Unknown]
  - Cardioversion [Unknown]
